FAERS Safety Report 6385199-2 (Version None)
Quarter: 2009Q4

REPORT INFORMATION
  Report Type: 
  Country: None (occurrence: None)
  Receive Date: 20091002
  Receipt Date: 20081016
  Transmission Date: 20100525
  Serious: No
  Sender: FDA-Public Use
  Company Number: US-ASTRAZENECA-2007UW04571

PATIENT
  Age: 65 Year
  Sex: Female
  Weight: 54.4 kg

DRUGS (3)
  1. ARIMIDEX [Suspect]
     Indication: BREAST CANCER
     Route: 048
     Dates: start: 20070201
  2. SYNTHROID [Concomitant]
  3. MULTI-VITAMIN [Concomitant]

REACTIONS (10)
  - ARTHRALGIA [None]
  - BLADDER PAIN [None]
  - BLOOD PRESSURE INCREASED [None]
  - DEPRESSION [None]
  - ESCHERICHIA BACTERAEMIA [None]
  - FATIGUE [None]
  - MALAISE [None]
  - OROPHARYNGEAL PAIN [None]
  - URETHRAL DISORDER [None]
  - WEIGHT DECREASED [None]
